FAERS Safety Report 10922729 (Version 1)
Quarter: 2015Q1

REPORT INFORMATION
  Report Type: Spontaneous
  Country: AU (occurrence: AU)
  Receive Date: 20150317
  Receipt Date: 20150317
  Transmission Date: 20150721
  Serious: Yes (Death, Other)
  Sender: FDA-Public Use
  Company Number: AU-GILEAD-2001-03396

PATIENT
  Age: 32 Year
  Sex: Male

DRUGS (6)
  1. SULFAMETHOXAZOLE AND TRIMETHOPRIM [Concomitant]
     Active Substance: SULFAMETHOXAZOLE\TRIMETHOPRIM
  2. VISTIDE [Suspect]
     Active Substance: CIDOFOVIR
     Dosage: ONCE
     Route: 042
  3. VISTIDE [Suspect]
     Active Substance: CIDOFOVIR
     Indication: CYTOMEGALOVIRUS CHORIORETINITIS
     Dosage: 5 MG/KG, Q2WK
     Route: 042
  4. PROBENECID. [Concomitant]
     Active Substance: PROBENECID
     Dosage: UNK
  5. RIFABUTIN. [Concomitant]
     Active Substance: RIFABUTIN
  6. CLARITHROMYCIN. [Concomitant]
     Active Substance: CLARITHROMYCIN

REACTIONS (2)
  - Fanconi syndrome acquired [Fatal]
  - Renal tubular acidosis [Fatal]
